FAERS Safety Report 5765840-5 (Version None)
Quarter: 2008Q2

REPORT INFORMATION
  Report Type: 
  Country: None (occurrence: None)
  Receive Date: 20080605
  Receipt Date: 20080521
  Transmission Date: 20081010
  Serious: Yes (Hospitalization)
  Sender: FDA-Public Use
  Company Number: 220003L08JPN

PATIENT
  Age: 13 Year
  Sex: Male

DRUGS (1)
  1. SOMATROPIN (SOMATROPIN) [Suspect]
     Indication: BODY HEIGHT BELOW NORMAL

REACTIONS (5)
  - GASTROINTESTINAL DISORDER [None]
  - HYPOPROTEINAEMIA [None]
  - LYMPHOEDEMA [None]
  - LYMPHOSTASIS [None]
  - PROTEIN-LOSING GASTROENTEROPATHY [None]
